FAERS Safety Report 9466039 (Version 2)
Quarter: 2013Q3

REPORT INFORMATION
  Report Type: Spontaneous
  Country: IT (occurrence: IT)
  Receive Date: 20130820
  Receipt Date: 20130903
  Transmission Date: 20140515
  Serious: Yes (Other)
  Sender: FDA-Public Use
  Company Number: IT-ASTRAZENECA-2013SE62825

PATIENT
  Age: 27859 Day
  Sex: Male
  Weight: 74 kg

DRUGS (8)
  1. BRILIQUE [Suspect]
     Indication: ACUTE CORONARY SYNDROME
     Route: 048
     Dates: start: 20130717, end: 20130717
  2. RANITIDINE [Concomitant]
  3. DILATREND [Concomitant]
  4. LASIX [Concomitant]
  5. TORVAST [Concomitant]
  6. TRIATEC [Concomitant]
  7. ESAPENT [Concomitant]
  8. CARDIOASPIRIN [Concomitant]

REACTIONS (2)
  - Asthmatic crisis [Recovered/Resolved]
  - Chest pain [Unknown]
